FAERS Safety Report 10153990 (Version 2)
Quarter: 2024Q1

REPORT INFORMATION
  Report Type: Report from Study
  Country: US (occurrence: US)
  Receive Date: 20140506
  Receipt Date: 20240212
  Transmission Date: 20240410
  Serious: Yes (Other)
  Sender: FDA-Public Use
  Company Number: US-SHIRE-US201401849

PATIENT
  Age: 44 Year
  Sex: Female
  Weight: 61.22 kg

DRUGS (6)
  1. MESALAMINE [Suspect]
     Active Substance: MESALAMINE
     Indication: Colitis ulcerative
     Dosage: 3.6 GRAM, QD
     Route: 048
     Dates: start: 2012
  2. MESALAMINE [Suspect]
     Active Substance: MESALAMINE
     Dosage: 3.6 GRAM, QD
     Route: 048
     Dates: start: 201403
  3. MESALAMINE [Suspect]
     Active Substance: MESALAMINE
     Dosage: 2.4 GRAM, QD
     Route: 048
  4. BENTYL [Concomitant]
     Active Substance: DICYCLOMINE HYDROCHLORIDE
     Indication: Abdominal pain upper
     Dosage: 20 MILLIGRAM, QD
     Route: 048
     Dates: start: 2009
  5. IMODIUM [Concomitant]
     Active Substance: LOPERAMIDE HYDROCHLORIDE
     Dosage: UNK
     Route: 048
  6. CYMBALTA [Concomitant]
     Active Substance: DULOXETINE HYDROCHLORIDE
     Indication: Anxiety
     Dosage: 30 MILLIGRAM, BID
     Route: 048
     Dates: start: 2009

REACTIONS (2)
  - Colitis ulcerative [Not Recovered/Not Resolved]
  - Product use issue [Unknown]

NARRATIVE: CASE EVENT DATE: 20140301
